FAERS Safety Report 7091565-2 (Version None)
Quarter: 2010Q4

REPORT INFORMATION
  Report Type: 
  Country: None (occurrence: None)
  Receive Date: 20101109
  Receipt Date: 20101104
  Transmission Date: 20110411
  Serious: Yes (Other)
  Sender: FDA-Public Use
  Company Number: JP-PFIZER INC-2010129655

PATIENT
  Age: 76 Year
  Sex: Female
  Weight: 58 kg

DRUGS (9)
  1. CLINDAMYCIN PHOSPHATE [Suspect]
     Dosage: 600 MG/DAY
  2. CLINDAMYCIN PHOSPHATE [Suspect]
     Dosage: 1800 MG
  3. CLINDAMYCIN PHOSPHATE [Suspect]
     Dosage: 600 MG, UNK
  4. ROCURONIUM [Concomitant]
     Indication: ANAESTHESIA
     Dosage: 35 MG, UNK
  5. ROCURONIUM [Concomitant]
     Dosage: 10MG (35MG AND EXTRA 10MG)
  6. FENTANYL [Concomitant]
     Indication: ANAESTHESIA
     Dosage: 100 UG, UNK
  7. PROPOFOL [Concomitant]
     Indication: ANAESTHESIA
     Dosage: 80 MG, UNK
  8. SEVOFLURANE [Concomitant]
     Indication: ANAESTHESIA
     Dosage: 1 %, UNK
  9. REMIFENTANIL [Concomitant]
     Indication: ANAESTHESIA
     Dosage: 0.1GAMMA TO 0.2GAMMA

REACTIONS (1)
  - HYPOTONIA [None]
